FAERS Safety Report 11431432 (Version 3)
Quarter: 2015Q3

REPORT INFORMATION
  Report Type: Report from Study
  Country: US (occurrence: US)
  Receive Date: 20150828
  Receipt Date: 20150915
  Transmission Date: 20151125
  Serious: Yes (Hospitalization)
  Sender: FDA-Public Use
  Company Number: US-PFIZER INC-2015282315

PATIENT
  Age: 17 Year
  Sex: Male
  Weight: 74.2 kg

DRUGS (4)
  1. CRIZOTINIB [Suspect]
     Active Substance: CRIZOTINIB
     Indication: EWING^S SARCOMA METASTATIC
     Dosage: 550 MG, CYCLIC, TWICE DAILY FOR 21 DAY CYCLE
     Route: 048
     Dates: start: 20150817, end: 20150819
  2. TOPOTECAN [Suspect]
     Active Substance: TOPOTECAN\TOPOTECAN HYDROCHLORIDE
     Indication: EWING^S SARCOMA METASTATIC
     Dosage: 0.75 MG/M2 (X 5 DAYS)
     Dates: start: 20150817, end: 20150818
  3. CYCLOPHOSPHAMIDE. [Suspect]
     Active Substance: CYCLOPHOSPHAMIDE
     Indication: EWING^S SARCOMA METASTATIC
     Dosage: 250 MG/M2, CYCLIC
     Dates: start: 20150817, end: 20150818
  4. CRIZOTINIB [Suspect]
     Active Substance: CRIZOTINIB
     Dosage: 280 MG/M2, CYCLIC
     Route: 048
     Dates: start: 20150901, end: 20150904

REACTIONS (2)
  - Hypotension [Recovered/Resolved]
  - Lung infection [Recovered/Resolved]

NARRATIVE: CASE EVENT DATE: 20150819
